FAERS Safety Report 7852891-X (Version None)
Quarter: 2011Q3

REPORT INFORMATION
  Report Type: 
  Country: None (occurrence: None)
  Receive Date: 20110914
  Receipt Date: 20101012
  Transmission Date: 20111222
  Serious: Yes (Death)
  Sender: FDA-Public Use
  Company Number: 1000016386

PATIENT
  Age: 42 Year
  Sex: Male

DRUGS (3)
  1. FENTANYL [Suspect]
     Dosage: ORAL
     Route: 048
     Dates: start: 20091001, end: 20091012
  2. AMBIEN CR [Suspect]
     Dosage: ORAL
     Route: 048
     Dates: start: 20091001, end: 20091012
  3. CITALOPRAM HYDROBROMIDE [Suspect]
     Dosage: ORAL
     Route: 048
     Dates: start: 20091001, end: 20091012

REACTIONS (1)
  - MULTIPLE DRUG OVERDOSE INTENTIONAL [None]
